FAERS Safety Report 7879145-X (Version None)
Quarter: 2011Q4

REPORT INFORMATION
  Report Type: 
  Country: None (occurrence: None)
  Receive Date: 20111101
  Receipt Date: 20111021
  Transmission Date: 20120403
  Serious: Yes (Other)
  Sender: FDA-Public Use
  Company Number: US-BAYER-2010-002241

PATIENT
  Age: 23 Year
  Sex: Female
  Weight: 117 kg

DRUGS (7)
  1. SPIRONOLACTONE [Concomitant]
     Dosage: 50 MG, UNK
  2. REPLIVA [Concomitant]
  3. LEVOTHYROXINE SODIUM [Concomitant]
     Dosage: 0.75 MG, UNK
  4. YAZ [Suspect]
     Indication: ACNE
  5. YAZ [Suspect]
     Indication: CONTRACEPTION
     Dosage: UNK
     Dates: start: 20080101, end: 20080101
  6. YAZ [Suspect]
     Indication: MOOD SWINGS
  7. VITAMIN D [Concomitant]
     Indication: VITAMIN D DEFICIENCY
     Dosage: UNK
     Dates: start: 20080101, end: 20090101

REACTIONS (9)
  - EMOTIONAL DISTRESS [None]
  - CHEST PAIN [None]
  - COELIAC DISEASE [None]
  - ABDOMINAL PAIN [None]
  - ANXIETY [None]
  - FOOD ALLERGY [None]
  - CHOLECYSTITIS CHRONIC [None]
  - GALLBLADDER DISORDER [None]
  - PAIN [None]
